FAERS Safety Report 7148927-4 (Version None)
Quarter: 2010Q4

REPORT INFORMATION
  Report Type: 
  Country: None (occurrence: None)
  Receive Date: 20101209
  Receipt Date: 20101203
  Transmission Date: 20110411
  Serious: Yes (Death, Life-Threatening, Disabling, Other)
  Sender: FDA-Public Use
  Company Number: A0897662A

PATIENT
  Age: 51 Year
  Sex: Female

DRUGS (3)
  1. HYCAMTIN [Suspect]
     Dosage: .25MG TWICE PER DAY
     Route: 065
     Dates: start: 20100923
  2. TYKERB [Suspect]
     Dosage: 750MG PER DAY
     Route: 048
     Dates: start: 20100923
  3. OCTREOTIDE ACETATE [Concomitant]

REACTIONS (1)
  - DEATH [None]
